FAERS Safety Report 9184597 (Version 2)
Quarter: 2013Q2

REPORT INFORMATION
  Report Type: Report from Study
  Country: US (occurrence: US)
  Receive Date: 20130324
  Receipt Date: 20130607
  Transmission Date: 20140414
  Serious: Yes (Other)
  Sender: FDA-Public Use
  Company Number: US-TEVA-393296USA

PATIENT
  Age: 33 Year
  Sex: Female

DRUGS (6)
  1. CLARAVIS [Suspect]
  2. LAMOTRIGINE [Concomitant]
  3. DEXAMFETAMINE SULFATE [Concomitant]
  4. LITHIUM [Concomitant]
  5. FLUOXETINE HYDROCHLORIDE [Concomitant]
  6. ZOLPIDEM TARTRATE [Concomitant]

REACTIONS (3)
  - Suicidal ideation [Recovered/Resolved]
  - Depression [Recovered/Resolved]
  - Bipolar disorder [Recovered/Resolved]
